FAERS Safety Report 4640285-X (Version None)
Quarter: 2005Q2

REPORT INFORMATION
  Report Type: 
  Country: None (occurrence: None)
  Receive Date: 20050419
  Receipt Date: 20050405
  Transmission Date: 20051028
  Serious: Yes (Hospitalization, Other)
  Sender: FDA-Public Use
  Company Number: 220023K05USA

PATIENT
  Age: 39 Year
  Sex: Female

DRUGS (1)
  1. SAIZEN [Suspect]
     Indication: GROWTH HORMONE DEFICIENCY
     Dosage: 3 IU, 1 IN 1 DAYS, NOT REPORTED

REACTIONS (2)
  - MENINGIOMA [None]
  - OFF LABEL USE [None]
